FAERS Safety Report 7709122-0 (Version None)
Quarter: 2011Q3

REPORT INFORMATION
  Report Type: 
  Country: None (occurrence: None)
  Receive Date: 20110825
  Receipt Date: 20110816
  Transmission Date: 20111222
  Serious: Yes (Other)
  Sender: FDA-Public Use
  Company Number: PHEH2010US01812

PATIENT
  Sex: Female

DRUGS (16)
  1. OXYCODONE HCL [Concomitant]
  2. ASPIRIN [Concomitant]
  3. CARVEDILOL [Concomitant]
  4. ASCORBIC ACID [Concomitant]
  5. PLAVIX [Concomitant]
  6. CITALOPRAM [Concomitant]
  7. MULTI-VITAMIN [Concomitant]
  8. LISINOPRIL [Concomitant]
  9. LIPITOR [Concomitant]
  10. CALCIUM CARBONATE [Concomitant]
  11. FOSAMAX [Suspect]
     Indication: BREAST CANCER
     Dates: end: 20080101
  12. ACETAMINOPHEN [Concomitant]
  13. ZOMETA [Suspect]
     Indication: BREAST CANCER
     Dates: end: 20080101
  14. NITROGLYCERIN [Concomitant]
  15. CYMBALTA [Concomitant]
  16. LOVAZA [Concomitant]

REACTIONS (26)
  - LYMPHADENOPATHY [None]
  - CORONARY ARTERY DISEASE [None]
  - OSTEONECROSIS OF JAW [None]
  - ABDOMINAL PAIN [None]
  - CHEST PAIN [None]
  - PAIN [None]
  - DYSPNOEA [None]
  - ANHEDONIA [None]
  - TOOTH LOSS [None]
  - BREATH ODOUR [None]
  - NEUROPATHY PERIPHERAL [None]
  - ANXIETY [None]
  - EXPOSED BONE IN JAW [None]
  - PELVIC PAIN [None]
  - HYPERLIPIDAEMIA [None]
  - HYPERCHOLESTEROLAEMIA [None]
  - NEOPLASM PROGRESSION [None]
  - OSTEOMYELITIS [None]
  - MYOCARDIAL INFARCTION [None]
  - PHAEOCHROMOCYTOMA [None]
  - DEPRESSION [None]
  - NEOPLASM MALIGNANT [None]
  - INJURY [None]
  - PATHOLOGICAL FRACTURE [None]
  - OROANTRAL FISTULA [None]
  - HYPERTENSION [None]
